FAERS Safety Report 16601985 (Version 1)
Quarter: 2019Q3

REPORT INFORMATION
  Report Type: Report from Study
  Country: US (occurrence: US)
  Receive Date: 20190719
  Receipt Date: 20190719
  Transmission Date: 20191004
  Serious: Yes (Other)
  Sender: FDA-Public Use
  Company Number: US-BRISTOL-MYERS SQUIBB COMPANY-BMS-2019-070317

PATIENT
  Age: 68 Year
  Sex: Female
  Weight: 68 kg

DRUGS (1)
  1. NIVOLUMAB [Suspect]
     Active Substance: NIVOLUMAB
     Indication: ANAL CANCER
     Dosage: 480 MILLIGRAM, Q4WKX6 CYCLES
     Route: 042
     Dates: start: 20190605, end: 20190605

REACTIONS (1)
  - Recall phenomenon [Unknown]

NARRATIVE: CASE EVENT DATE: 20190702
